FAERS Safety Report 6842638-8 (Version None)
Quarter: 2010Q3

REPORT INFORMATION
  Report Type: 
  Country: None (occurrence: None)
  Receive Date: 20100714
  Receipt Date: 20070806
  Transmission Date: 20110219
  Serious: No
  Sender: FDA-Public Use
  Company Number: US-PFIZER INC-2007065475

PATIENT
  Sex: Male
  Weight: 65.9 kg

DRUGS (3)
  1. CHANTIX [Suspect]
     Indication: SMOKING CESSATION THERAPY
     Dates: start: 20070727
  2. LIPITOR [Concomitant]
     Indication: BLOOD CHOLESTEROL INCREASED
     Dates: start: 19920101
  3. LISINOPRIL [Concomitant]
     Indication: BLOOD CHOLESTEROL INCREASED
     Dates: start: 19920101

REACTIONS (2)
  - FATIGUE [None]
  - INSOMNIA [None]
